FAERS Safety Report 4777524-0 (Version None)
Quarter: 2005Q3

REPORT INFORMATION
  Report Type: 
  Country: None (occurrence: None)
  Receive Date: 20050923
  Receipt Date: 20040106
  Transmission Date: 20060218
  Serious: Yes (Hospitalization)
  Sender: FDA-Public Use
  Company Number: US-BRACCO-BDI-005720

PATIENT
  Age: 58 Year
  Sex: Female

DRUGS (9)
  1. ISOVUE-128 [Suspect]
     Indication: ABDOMINAL PAIN
     Route: 058
     Dates: start: 20040105, end: 20040105
  2. ISOVUE-128 [Suspect]
     Indication: OVARIAN CANCER
     Route: 058
     Dates: start: 20040105, end: 20040105
  3. ISOVUE-128 [Suspect]
     Route: 058
     Dates: start: 20040105, end: 20040105
  4. NEURONTIN [Concomitant]
     Route: 050
  5. COUMADIN [Concomitant]
     Route: 050
  6. CELEBREX [Concomitant]
     Route: 050
  7. OXYCODONE HCL [Concomitant]
     Route: 050
  8. PREVACID [Concomitant]
     Route: 050
  9. BUMEX [Concomitant]
     Route: 050

REACTIONS (2)
  - COMPARTMENT SYNDROME [None]
  - EXTRAVASATION [None]
